FAERS Safety Report 7355441-X (Version None)
Quarter: 2011Q1

REPORT INFORMATION
  Report Type: 
  Country: None (occurrence: None)
  Receive Date: 20110316
  Receipt Date: 20110309
  Transmission Date: 20110831
  Serious: Yes (Hospitalization)
  Sender: FDA-Public Use
  Company Number: DE-ELI_LILLY_AND_COMPANY-DE201103003116

PATIENT
  Age: 71 Year
  Sex: Male

DRUGS (4)
  1. FORTECORTIN [Concomitant]
     Dosage: 8 MG, UNKNOWN
     Route: 065
  2. SODIUM CHLORIDE [Concomitant]
     Dosage: 0.9 %, UNKNOWN
     Route: 065
  3. CISPLATIN [Concomitant]
     Dosage: 75 MG/M2, UNKNOWN
     Route: 042
     Dates: start: 20110210
  4. ALIMTA [Suspect]
     Indication: MESOTHELIOMA MALIGNANT
     Dosage: 500 MG/M2, UNKNOWN
     Route: 042
     Dates: start: 20110210

REACTIONS (2)
  - PSORIASIS [None]
  - SKIN EXFOLIATION [None]
